FAERS Safety Report 14101792 (Version 1)
Quarter: 2017Q4

REPORT INFORMATION
  Report Type: Spontaneous
  Country: US (occurrence: US)
  Receive Date: 20171018
  Receipt Date: 20171018
  Transmission Date: 20180321
  Serious: Yes (Death)
  Sender: FDA-Public Use
  Company Number: PHEH2017US033706

PATIENT

DRUGS (1)
  1. ZYKADIA [Suspect]
     Active Substance: CERITINIB
     Indication: GASTROINTESTINAL CARCINOMA
     Route: 048

REACTIONS (1)
  - Death [Fatal]
